FAERS Safety Report 8172427-6 (Version None)
Quarter: 2012Q1

REPORT INFORMATION
  Report Type: 
  Country: None (occurrence: None)
  Receive Date: 20120224
  Receipt Date: 20120224
  Transmission Date: 20120608
  Serious: Yes (Hospitalization)
  Sender: FDA-Public Use
  Company Number: None

PATIENT
  Sex: Male
  Weight: 97.3 kg

DRUGS (2)
  1. CISPLATIN [Suspect]
     Dosage: 50 MG
     Dates: end: 20120124
  2. TAXOL [Suspect]
     Dosage: 100 MG
     Dates: end: 20120124

REACTIONS (7)
  - PANCYTOPENIA [None]
  - WHITE BLOOD CELL COUNT DECREASED [None]
  - HYPOMAGNESAEMIA [None]
  - VOMITING [None]
  - DEHYDRATION [None]
  - NAUSEA [None]
  - HYPOKALAEMIA [None]
